FAERS Safety Report 21552352 (Version 7)
Quarter: 2023Q4

REPORT INFORMATION
  Report Type: Spontaneous
  Country: CA (occurrence: CA)
  Receive Date: 20221104
  Receipt Date: 20231116
  Transmission Date: 20240110
  Serious: Yes (Hospitalization, Other)
  Sender: FDA-Public Use
  Company Number: CA-CELLTRION INC.-2021CA018474

PATIENT

DRUGS (13)
  1. INFLECTRA [Suspect]
     Active Substance: INFLIXIMAB-DYYB
     Indication: Crohn^s disease
     Dosage: Q 0, 2, 6 WEEKS THEN EVERY 4 WEEKS
     Route: 041
     Dates: start: 20210122
  2. INFLECTRA [Suspect]
     Active Substance: INFLIXIMAB-DYYB
     Dosage: 500 MG Q 0, 2, 6 WEEKS THEN EVERY 4 WEEKS
     Route: 042
     Dates: start: 20210122
  3. INFLECTRA [Suspect]
     Active Substance: INFLIXIMAB-DYYB
     Dosage: 400 MG, Q 0, 2, 6 WEEKS THEN EVERY 4 WEEKS
     Route: 041
     Dates: start: 20211025
  4. INFLECTRA [Suspect]
     Active Substance: INFLIXIMAB-DYYB
     Dosage: 400 MG, Q 0, 2, 6 WEEKS THEN EVERY 4 WEEKS
     Route: 041
     Dates: start: 20211206
  5. INFLECTRA [Suspect]
     Active Substance: INFLIXIMAB-DYYB
     Dosage: 500 MG Q 0, 2, 6 WEEKS THEN EVERY 4 WEEKS
     Route: 041
     Dates: start: 20220916
  6. INFLECTRA [Suspect]
     Active Substance: INFLIXIMAB-DYYB
     Dosage: 500 MG ,Q 0, 2, 6 WEEKS THEN EVERY 4 WEEKS
     Route: 042
     Dates: start: 20230116
  7. INFLECTRA [Suspect]
     Active Substance: INFLIXIMAB-DYYB
     Dosage: 500 MG ,Q 0, 2, 6 WEEKS THEN EVERY 4 WEEKS
     Route: 042
     Dates: start: 20230116
  8. INFLECTRA [Suspect]
     Active Substance: INFLIXIMAB-DYYB
     Dosage: 500 MG Q 0, 2, 6 WEEKS THEN EVERY 4 WEEKS
     Route: 041
     Dates: start: 20230210
  9. INFLECTRA [Suspect]
     Active Substance: INFLIXIMAB-DYYB
     Dosage: 500 MG Q 0, 2, 6 WEEKS THEN EVERY 4 WEEKS
     Route: 041
     Dates: start: 20231020
  10. ACETAMINOPHEN [Concomitant]
     Active Substance: ACETAMINOPHEN
     Indication: Premedication
     Dosage: 650 MG, PO 15-30 MIN PRIOR TO INFUSION
     Route: 048
     Dates: start: 20230210, end: 20230210
  11. DIPHENHYDRAMINE [Concomitant]
     Active Substance: DIPHENHYDRAMINE
     Indication: Premedication
     Dosage: 50 MG, PER ORAL
     Route: 048
     Dates: start: 20230210, end: 20230210
  12. HYDROCORTISONE [Concomitant]
     Active Substance: HYDROCORTISONE
     Indication: Premedication
     Dosage: 100 MG, IV 15-30 MIN PRIOR TO INFUSION
     Route: 042
     Dates: start: 20230210, end: 20230210
  13. METHOTREXATE [Concomitant]
     Active Substance: METHOTREXATE
     Dosage: 1 DF, DOSAGE INFORMATION NOT AVAILABLE/ DISCONTINUED
     Route: 065

REACTIONS (12)
  - Abdominal hernia [Recovering/Resolving]
  - Headache [Recovered/Resolved]
  - Pruritus [Recovered/Resolved]
  - Blood pressure systolic increased [Unknown]
  - Feeling abnormal [Recovered/Resolved]
  - Erythema [Recovered/Resolved]
  - Paraesthesia [Not Recovered/Not Resolved]
  - Discomfort [Not Recovered/Not Resolved]
  - Hot flush [Not Recovered/Not Resolved]
  - Off label use [Unknown]
  - Off label use [Unknown]
  - Inappropriate schedule of product administration [Unknown]

NARRATIVE: CASE EVENT DATE: 20210122
